FAERS Safety Report 6251766-X (Version None)
Quarter: 2009Q3

REPORT INFORMATION
  Report Type: 
  Country: None (occurrence: None)
  Receive Date: 20090626
  Receipt Date: 20090408
  Transmission Date: 20100115
  Serious: Yes (Hospitalization)
  Sender: FDA-Public Use
  Company Number: 626816

PATIENT
  Sex: Male

DRUGS (3)
  1. XELODA [Suspect]
     Indication: PANCREATIC CARCINOMA
  2. GEMZAR [Suspect]
     Indication: PANCREATIC CARCINOMA
  3. DEXAMETHASONE TAB [Suspect]
     Indication: PANCREATIC CARCINOMA

REACTIONS (1)
  - GASTRITIS [None]
